FAERS Safety Report 8065855-0 (Version None)
Quarter: 2012Q1

REPORT INFORMATION
  Report Type: 
  Country: None (occurrence: None)
  Receive Date: 20120124
  Receipt Date: 20120118
  Transmission Date: 20120608
  Serious: Yes (Death, Hospitalization)
  Sender: FDA-Public Use
  Company Number: US-CELGENEUS-163-21880-12010957

PATIENT
  Sex: Female
  Weight: 75.364 kg

DRUGS (24)
  1. REVLIMID [Suspect]
     Indication: MULTIPLE MYELOMA
     Dosage: 25 MILLIGRAM
     Route: 048
     Dates: start: 20111111
  2. BORTEZOMIB [Suspect]
     Dosage: 1.3 MILLIGRAM/SQ. METER
     Route: 041
     Dates: start: 20111230, end: 20120103
  3. ONDANSETRON [Concomitant]
     Indication: NAUSEA
     Dosage: 40 MILLIGRAM
     Route: 048
  4. ATORVASTATIN [Concomitant]
     Route: 065
  5. REVLIMID [Suspect]
     Dosage: 25 MILLIGRAM
     Route: 048
     Dates: start: 20111230, end: 20120106
  6. DOCUSATE SODIUM [Concomitant]
     Dosage: 100 MILLIGRAM
     Route: 048
  7. ACYCLOVIR [Concomitant]
     Route: 065
  8. DEXAMETHASONE [Suspect]
     Dosage: 20 MILLIGRAM
     Route: 048
     Dates: start: 20111230, end: 20120106
  9. BORTEZOMIB [Suspect]
     Indication: MULTIPLE MYELOMA
     Dosage: 1.3 MILLIGRAM/SQ. METER
     Route: 041
     Dates: start: 20111111
  10. TRAMADOL HCL [Concomitant]
     Dosage: 50 MILLIGRAM
     Route: 048
  11. GABAPENTIN [Concomitant]
     Route: 048
  12. LANTUS [Concomitant]
     Dosage: 25 UNITS
     Route: 058
  13. LIDOCAINE [Concomitant]
     Route: 061
  14. MS CONTIN [Concomitant]
     Dosage: 15 MILLIGRAM
     Route: 048
  15. CLOPIDOGREL [Concomitant]
     Dosage: 75 MILLIGRAM
     Route: 048
  16. METOPROLOL TARTRATE [Concomitant]
     Route: 065
  17. DEXAMETHASONE [Suspect]
     Indication: MULTIPLE MYELOMA
     Dosage: 20 MILLIGRAM
     Route: 048
     Dates: start: 20111111
  18. PERCOCET [Concomitant]
     Route: 065
  19. FUROSEMIDE [Concomitant]
     Dosage: 40 MILLIGRAM
     Route: 048
  20. CALCIUM CARBONATE [Concomitant]
     Dosage: 500 MILLIGRAM
     Route: 048
  21. ACETAMINOPHEN [Concomitant]
     Indication: PAIN
     Dosage: 650 MILLIGRAM
     Route: 048
  22. PANTOPRAZOLE SODIUM [Concomitant]
     Dosage: 40 MILLIGRAM
     Route: 048
  23. ASPIRIN [Concomitant]
     Dosage: 325 MILLIGRAM
     Route: 048
     Dates: start: 20111111
  24. ENALAPRIL MALEATE [Concomitant]
     Route: 065

REACTIONS (23)
  - RENAL FAILURE CHRONIC [None]
  - BLOOD GLUCOSE INCREASED [None]
  - CEREBRAL ATROPHY [None]
  - DIARRHOEA [None]
  - DEHYDRATION [None]
  - SEPSIS [None]
  - NEPHROLITHIASIS [None]
  - ANAEMIA [None]
  - DEATH [None]
  - DECREASED APPETITE [None]
  - BLOOD POTASSIUM DECREASED [None]
  - MUSCULAR WEAKNESS [None]
  - ABDOMINAL PAIN [None]
  - SOMNOLENCE [None]
  - CLOSTRIDIUM DIFFICILE COLITIS [None]
  - DIVERTICULUM INTESTINAL [None]
  - MENTAL STATUS CHANGES [None]
  - FALL [None]
  - SYNCOPE [None]
  - RENAL FAILURE ACUTE [None]
  - BLOOD CHLORIDE INCREASED [None]
  - ENTEROCOLITIS INFECTIOUS [None]
  - HYPOTENSION [None]
